FAERS Safety Report 4421271-1 (Version None)
Quarter: 2004Q3

REPORT INFORMATION
  Report Type: 
  Country: None (occurrence: None)
  Receive Date: 20040707
  Receipt Date: 20040524
  Transmission Date: 20050211
  Serious: No
  Sender: FDA-Public Use
  Company Number: SU-2004-002395

PATIENT
  Age: 67 Year
  Sex: Female
  Weight: 92.0802 kg

DRUGS (2)
  1. BENICAR HCT [Suspect]
     Indication: HYPERTENSION
     Dosage: 20.125 MG QD PO
     Route: 048
     Dates: start: 20040521
  2. MULTIVITAMIN [Concomitant]

REACTIONS (3)
  - ARTHRALGIA [None]
  - DIARRHOEA [None]
  - HEADACHE [None]
